FAERS Safety Report 5847422-X (Version None)
Quarter: 2008Q3

REPORT INFORMATION
  Report Type: 
  Country: None (occurrence: None)
  Receive Date: 20080815
  Receipt Date: 20080807
  Transmission Date: 20090109
  Serious: Yes (Hospitalization)
  Sender: FDA-Public Use
  Company Number: US-MERCK-0705USA02856

PATIENT
  Age: 62 Year
  Sex: Female

DRUGS (2)
  1. FOSAMAX [Suspect]
     Indication: OSTEOPOROSIS
     Route: 048
     Dates: start: 20010101, end: 20060501
  2. LEVOXYL [Concomitant]
     Indication: HYPOTHYROIDISM
     Route: 065
     Dates: start: 20000101

REACTIONS (16)
  - ABSCESS [None]
  - ARTHRALGIA [None]
  - ATROPHIC VULVOVAGINITIS [None]
  - CHEST PAIN [None]
  - CONJUNCTIVITIS [None]
  - DIVERTICULITIS [None]
  - EYE PAIN [None]
  - EYE SWELLING [None]
  - FATIGUE [None]
  - GINGIVAL DISORDER [None]
  - GINGIVAL RECESSION [None]
  - LOCALISED INFECTION [None]
  - ORAL INFECTION [None]
  - OSTEOPOROSIS [None]
  - TOOTH FRACTURE [None]
  - TOOTHACHE [None]
